FAERS Safety Report 5200145-2 (Version None)
Quarter: 2007Q1

REPORT INFORMATION
  Report Type: 
  Country: None (occurrence: None)
  Receive Date: 20070105
  Receipt Date: 20070103
  Transmission Date: 20070707
  Serious: Yes (Hospitalization)
  Sender: FDA-Public Use
  Company Number: US-ELI_LILLY_AND_COMPANY-US200701000035

PATIENT
  Age: 82 Year
  Sex: Male
  Weight: 80.2 kg

DRUGS (8)
  1. SOMATROPIN [Suspect]
     Indication: GROWTH HORMONE DEFICIENCY
     Dosage: 0.4 MG, EACH EVENING
     Route: 058
     Dates: end: 20061228
  2. SYNTHROID [Concomitant]
     Indication: HYPOTHYROIDISM
  3. CORTISONE ACETATE [Concomitant]
     Indication: HYPOPITUITARISM
  4. ANDROGEL [Concomitant]
     Indication: HYPOPITUITARISM
  5. PLENDIL                                 /SWE/ [Concomitant]
     Indication: INTERMITTENT CLAUDICATION
  6. HYDROCHLOROTHIAZIDE [Concomitant]
     Indication: HYPERTENSION
  7. SIMVASTATIN [Concomitant]
     Indication: HYPERLIPIDAEMIA
  8. COUMADIN [Concomitant]
     Indication: PROPHYLAXIS

REACTIONS (1)
  - THYROID CANCER [None]
